FAERS Safety Report 4781733-4 (Version None)
Quarter: 2005Q3

REPORT INFORMATION
  Report Type: 
  Country: None (occurrence: None)
  Receive Date: 20050927
  Receipt Date: 20050920
  Transmission Date: 20060218
  Serious: Yes (Hospitalization)
  Sender: FDA-Public Use
  Company Number: T05-USA-00117-01

PATIENT
  Age: 48 Year
  Sex: Female
  Weight: 78 kg

DRUGS (8)
  1. MEMANTINE HCL [Suspect]
     Indication: PAIN
  2. MEMANTINE HCL [Suspect]
     Indication: POST HERPETIC NEURALGIA
  3. PLACEBO (UNBLINDED) [Suspect]
     Indication: PAIN
     Dates: start: 20041011, end: 20041224
  4. PLACEBO (UNBLINDED) [Suspect]
     Indication: POST HERPETIC NEURALGIA
     Dates: start: 20041011, end: 20041224
  5. ACETAMINOPHEN [Suspect]
     Indication: PAIN
     Dosage: 3000 MG QD PO
     Route: 048
     Dates: start: 20041011, end: 20041224
  6. ACETAMINOPHEN [Suspect]
     Indication: POST HERPETIC NEURALGIA
     Dosage: 3000 MG QD PO
     Route: 048
     Dates: start: 20041011, end: 20041224
  7. AMOXICILLIN [Concomitant]
  8. DIAZEPAM [Concomitant]

REACTIONS (11)
  - ABDOMINAL PAIN [None]
  - ADRENAL ADENOMA [None]
  - AGITATION [None]
  - CATHETER RELATED COMPLICATION [None]
  - NAUSEA [None]
  - PANCREATITIS ACUTE [None]
  - PERIPANCREATIC FLUID COLLECTION [None]
  - REFUSAL OF TREATMENT BY PATIENT [None]
  - TREATMENT NONCOMPLIANCE [None]
  - UTERINE LEIOMYOMA [None]
  - VOMITING [None]
